FAERS Safety Report 20061477 (Version 2)
Quarter: 2021Q4

REPORT INFORMATION
  Report Type: Spontaneous
  Country: JP (occurrence: JP)
  Receive Date: 20211112
  Receipt Date: 20211220
  Transmission Date: 20220303
  Serious: Yes (Disabling, Other)
  Sender: FDA-Public Use
  Company Number: JP-NOVARTISPH-NVSJ2021JP017324

PATIENT
  Age: 91 Year
  Sex: Female
  Weight: 40 kg

DRUGS (2)
  1. BEOVU [Suspect]
     Active Substance: BROLUCIZUMAB-DBLL
     Indication: Age-related macular degeneration
     Dosage: 6 MG
     Route: 031
     Dates: start: 20210910, end: 20210910
  2. BEOVU [Suspect]
     Active Substance: BROLUCIZUMAB-DBLL
     Dosage: 6 MG
     Route: 031
     Dates: start: 20211008, end: 20211008

REACTIONS (7)
  - Retinal artery occlusion [Recovered/Resolved with Sequelae]
  - Retinal vein occlusion [Recovered/Resolved with Sequelae]
  - Retinal vasculitis [Recovered/Resolved with Sequelae]
  - Keratic precipitates [Unknown]
  - Retinal ischaemia [Unknown]
  - Retinal disorder [Unknown]
  - Visual impairment [Unknown]

NARRATIVE: CASE EVENT DATE: 20211009
